FAERS Safety Report 8999712 (Version 1)
Quarter: 2013Q1

REPORT INFORMATION
  Report Type: Spontaneous
  Country: JP (occurrence: JP)
  Receive Date: 20130102
  Receipt Date: 20130102
  Transmission Date: 20140127
  Serious: Yes (Other)
  Sender: FDA-Public Use
  Company Number: JP-GLAXOSMITHKLINE-B0854879A

PATIENT
  Age: 64 Year
  Sex: Male

DRUGS (5)
  1. VALTREX [Suspect]
     Indication: HERPES ZOSTER
     Dosage: 1000MG THREE TIMES PER DAY
     Route: 048
  2. SENNOSIDE [Concomitant]
     Route: 048
  3. MAGNESIUM OXIDE [Concomitant]
     Route: 065
  4. ANTIBIOTIC [Concomitant]
     Route: 065
  5. HORMONES [Concomitant]
     Route: 065

REACTIONS (2)
  - Urinary retention [Unknown]
  - Dysuria [Unknown]
